FAERS Safety Report 26019013 (Version 3)
Quarter: 2025Q4

REPORT INFORMATION
  Report Type: Spontaneous
  Country: AU (occurrence: AU)
  Receive Date: 20251110
  Receipt Date: 20251208
  Transmission Date: 20260118
  Serious: Yes (Death)
  Sender: RECORDATI
  Company Number: AU-RECORDATI RARE DISEASES-2025007968

PATIENT
  Age: 68 Year
  Sex: Male

DRUGS (5)
  1. ISTURISA [Suspect]
     Active Substance: OSILODROSTAT PHOSPHATE
     Indication: Cushing^s syndrome
     Dosage: 15 MG, BID
     Route: 048
     Dates: start: 20250812, end: 20250823
  2. ISTURISA [Suspect]
     Active Substance: OSILODROSTAT PHOSPHATE
     Indication: Adrenocortical carcinoma
  3. ISTURISA [Suspect]
     Active Substance: OSILODROSTAT PHOSPHATE
     Indication: Adrenal gland cancer metastatic
  4. DEXAMETHASONE [Concomitant]
     Active Substance: DEXAMETHASONE
     Indication: Product used for unknown indication
     Dosage: BLOCK AND REPLACE WITH ISTURISA
  5. HYDROCORTISONE [Concomitant]
     Active Substance: HYDROCORTISONE
     Indication: Product used for unknown indication
     Dosage: BLOCK AND REPLACE APPROACH WITH ISTURISA

REACTIONS (1)
  - Disease progression [Fatal]

NARRATIVE: CASE EVENT DATE: 20250823
